FAERS Safety Report 7356200-4 (Version None)
Quarter: 2011Q1

REPORT INFORMATION
  Report Type: 
  Country: None (occurrence: None)
  Receive Date: 20110316
  Receipt Date: 20110310
  Transmission Date: 20110831
  Serious: Yes (Death)
  Sender: FDA-Public Use
  Company Number: FR-PFIZER INC-2011053138

PATIENT
  Age: 63 Year
  Sex: Male

DRUGS (15)
  1. SOLU-MEDROL [Suspect]
     Indication: EPIDURITIS
     Dosage: 120 MG DAILY
     Route: 042
     Dates: start: 20110128, end: 20110128
  2. SOLU-MEDROL [Suspect]
     Dosage: 60 MG DAILY
     Route: 042
     Dates: start: 20110201, end: 20110203
  3. SOLU-MEDROL [Suspect]
     Dosage: UNK
     Route: 048
     Dates: start: 20110204, end: 20110207
  4. LYRICA [Concomitant]
     Dosage: 100 MG, 2X/DAY
  5. SOLUPRED [Concomitant]
     Dosage: 40 MG DAILY
  6. SOLU-MEDROL [Suspect]
     Dosage: 40 MG DAILY
     Route: 042
     Dates: start: 20110204, end: 20110204
  7. ABIRATERONE ACETATE [Suspect]
     Indication: PROSTATE CANCER
     Dosage: 1000 MG, 1X/DAY
     Dates: start: 20110205, end: 20110206
  8. TAHOR [Concomitant]
     Indication: HYPERCHOLESTEROLAEMIA
     Dosage: 10 MG, ALTERNATE DAY
  9. MOVIPREP [Concomitant]
     Dosage: UNK
  10. ACTISKENAN [Concomitant]
     Indication: PAIN
     Dosage: 10 MG, EVERY 4 HRS
  11. ACETAMINOPHEN [Concomitant]
     Dosage: 1 G, 4X/DAY
  12. SOLU-MEDROL [Suspect]
     Dosage: 90 MG DAILY
     Route: 042
     Dates: start: 20110129, end: 20110130
  13. SKENAN [Concomitant]
     Indication: PAIN
     Dosage: 60 MG, 2X/DAY
  14. OMEPRAZOLE [Concomitant]
     Dosage: 20 MG, 1X/DAY
  15. SOLUPRED [Concomitant]
     Dosage: 20 MG DAILY

REACTIONS (1)
  - HAEMORRHAGIC STROKE [None]
